FAERS Safety Report 10094559 (Version 3)
Quarter: 2014Q2

REPORT INFORMATION
  Report Type: Spontaneous
  Country: US (occurrence: US)
  Receive Date: 20140422
  Receipt Date: 20140527
  Transmission Date: 20141212
  Serious: Yes (Other)
  Sender: FDA-Public Use
  Company Number: US-TEVA-476835USA

PATIENT
  Age: 23 Year
  Sex: Female
  Weight: 70.37 kg

DRUGS (1)
  1. PARAGARD 380A [Suspect]
     Indication: CONTRACEPTION
     Route: 015
     Dates: start: 20140403

REACTIONS (4)
  - Device dislocation [Not Recovered/Not Resolved]
  - Discomfort [Unknown]
  - Complication of device insertion [Unknown]
  - Abdominal discomfort [Unknown]
